FAERS Safety Report 9329116 (Version 1)
Quarter: 2013Q2

REPORT INFORMATION
  Report Type: Spontaneous
  Country: US (occurrence: US)
  Receive Date: 20130604
  Receipt Date: 20130604
  Transmission Date: 20140414
  Serious: Yes (Other)
  Sender: FDA-Public Use
  Company Number: US-SANOFI-AVENTIS-2012SA073145

PATIENT
  Sex: Male
  Weight: 68.39 kg

DRUGS (1)
  1. LANTUS [Suspect]
     Indication: TYPE 1 DIABETES MELLITUS
     Dosage: DOSE:16 UNIT(S)
     Route: 058

REACTIONS (4)
  - Hypoglycaemia [Recovered/Resolved]
  - Syncope [Recovered/Resolved]
  - Blood glucose increased [Recovered/Resolved]
  - Medication error [Unknown]
